FAERS Safety Report 11142351 (Version 3)
Quarter: 2015Q3

REPORT INFORMATION
  Report Type: Report from Study
  Country: CN (occurrence: CN)
  Receive Date: 20150527
  Receipt Date: 20150720
  Transmission Date: 20151125
  Serious: Yes (Congenital Anomaly)
  Sender: FDA-Public Use
  Company Number: CN-UCBSA-2015015903

PATIENT
  Age: 0 Year
  Sex: Male
  Weight: 2.62 kg

DRUGS (6)
  1. LACOSAMIDE EP [Suspect]
     Active Substance: LACOSAMIDE
     Indication: EPILEPSY
     Dosage: 150 MG, 2X/DAY (BID)
     Route: 064
     Dates: start: 20140704, end: 20140811
  2. LAMOTRIGINE. [Concomitant]
     Active Substance: LAMOTRIGINE
     Dosage: 100 MG, ONCE DAILY (QD)
     Route: 064
     Dates: start: 20140818
  3. LACOSAMIDE EP [Suspect]
     Active Substance: LACOSAMIDE
     Dosage: 50 MG, 2X/DAY (BID)
     Route: 064
     Dates: start: 20140814, end: 20140814
  4. LAMOTRIGINE. [Concomitant]
     Active Substance: LAMOTRIGINE
     Dosage: 75 MG, ONCE DAILY (QD)
     Route: 064
     Dates: start: 20140815, end: 2014
  5. LAMOTRIGINE. [Concomitant]
     Active Substance: LAMOTRIGINE
     Indication: EPILEPSY
     Dosage: 75 MG, 2X/DAY (BID)
     Route: 064
     Dates: start: 20140704, end: 2014
  6. LACOSAMIDE EP [Suspect]
     Active Substance: LACOSAMIDE
     Dosage: 100 MG, 2X/DAY (BID)
     Route: 064
     Dates: start: 20140811, end: 20140814

REACTIONS (2)
  - Cardiac septal defect [Not Recovered/Not Resolved]
  - Foetal exposure during pregnancy [Unknown]

NARRATIVE: CASE EVENT DATE: 20140704
